FAERS Safety Report 17261789 (Version 1)
Quarter: 2020Q1

REPORT INFORMATION
  Report Type: Spontaneous
  Country: FR (occurrence: FR)
  Receive Date: 20200113
  Receipt Date: 20200113
  Transmission Date: 20200409
  Serious: Yes (Hospitalization)
  Sender: FDA-Public Use
  Company Number: FR-CHEPLA-C20200138

PATIENT
  Age: 70 Year
  Sex: Male
  Weight: 69 kg

DRUGS (11)
  1. KARDEGIC [Concomitant]
     Active Substance: ASPIRIN DL-LYSINE
  2. LANSOPRAZOL [Concomitant]
     Active Substance: LANSOPRAZOLE
  3. ATORVASTATIN [Concomitant]
     Active Substance: ATORVASTATIN
  4. SODIUM BICARBONATE. [Concomitant]
     Active Substance: SODIUM BICARBONATE
  5. SOLUPRED [Concomitant]
  6. GALVUS [Concomitant]
     Active Substance: VILDAGLIPTIN
  7. JOSIR [Concomitant]
     Active Substance: TAMSULOSIN
  8. CYMEVAN [Suspect]
     Active Substance: GANCICLOVIR
     Indication: CYTOMEGALOVIRUS INFECTION
     Route: 041
     Dates: start: 20191119, end: 20191125
  9. EPREX [Concomitant]
     Active Substance: ERYTHROPOIETIN
  10. ADVAGRAF [Concomitant]
     Active Substance: TACROLIMUS
  11. KAYEXALATE [Concomitant]
     Active Substance: SODIUM POLYSTYRENE SULFONATE

REACTIONS (3)
  - Fall [Unknown]
  - Vertigo [Not Recovered/Not Resolved]
  - Injury [Unknown]

NARRATIVE: CASE EVENT DATE: 20191122
